FAERS Safety Report 13397853 (Version 2)
Quarter: 2017Q2

REPORT INFORMATION
  Report Type: Spontaneous
  Country: CN (occurrence: CN)
  Receive Date: 20170403
  Receipt Date: 20170407
  Transmission Date: 20170830
  Serious: Yes (Disabling, Other)
  Sender: FDA-Public Use
  Company Number: CN-PFIZER INC-2017137621

PATIENT
  Age: 56 Year
  Sex: Male

DRUGS (2)
  1. PACLITAXEL. [Interacting]
     Active Substance: PACLITAXEL
     Indication: NASOPHARYNGEAL CANCER
     Dosage: 150 MG/M2, UNK
  2. CISPLATIN. [Suspect]
     Active Substance: CISPLATIN
     Indication: NASOPHARYNGEAL CANCER
     Dosage: 75 MG/M2, UNK

REACTIONS (8)
  - Neurotoxicity [Not Recovered/Not Resolved]
  - Drug interaction [Unknown]
  - Vomiting [Unknown]
  - Radiation interaction [Unknown]
  - Hypoaesthesia [Unknown]
  - Nausea [Unknown]
  - Headache [Unknown]
  - Neutropenia [Recovered/Resolved]
